FAERS Safety Report 15363048 (Version 2)
Quarter: 2018Q4

REPORT INFORMATION
  Report Type: Report from Study
  Country: AU (occurrence: AU)
  Receive Date: 20180907
  Receipt Date: 20181109
  Transmission Date: 20190204
  Serious: Yes (Other)
  Sender: FDA-Public Use
  Company Number: AU-PFIZER INC-2018350691

PATIENT
  Age: 3 Year
  Sex: Male
  Weight: 19.5 kg

DRUGS (3)
  1. TEMSIROLIMUS. [Suspect]
     Active Substance: TEMSIROLIMUS
     Indication: EMBRYONAL RHABDOMYOSARCOMA
     Dosage: 33 MG, CYCLIC, 0.5 MG/KG ON DAYS 1, 8, AND 15
     Route: 042
     Dates: start: 20180726
  2. VINCRISTINE [Suspect]
     Active Substance: VINCRISTINE
     Indication: EMBRYONAL RHABDOMYOSARCOMA
     Dosage: 3.3 MG, CYCLIC OVER 1 MINUTE OR INFUSION VIA MINIBAG ON DAYS 1, 8, AND 15
     Route: 042
     Dates: start: 20180726
  3. CAMPTOSAR [Suspect]
     Active Substance: IRINOTECAN HYDROCHLORIDE
     Indication: EMBRYONAL RHABDOMYOSARCOMA
     Dosage: 190 MG, CYCLIC, OVER 90 MINUTES ON DAYS 1-5 OF CYCLES 2 AND 4
     Route: 042
     Dates: start: 20180726

REACTIONS (2)
  - Neutrophil count decreased [Recovering/Resolving]
  - White blood cell count decreased [Recovering/Resolving]

NARRATIVE: CASE EVENT DATE: 20180814
